FAERS Safety Report 20021044 (Version 11)
Quarter: 2022Q4

REPORT INFORMATION
  Report Type: Report from Study
  Country: US (occurrence: US)
  Receive Date: 20211101
  Receipt Date: 20221102
  Transmission Date: 20230113
  Serious: Yes (Other)
  Sender: FDA-Public Use
  Company Number: NVSC2021US249425

PATIENT
  Age: 36 Year
  Sex: Female
  Weight: 54.431 kg

DRUGS (5)
  1. TREPROSTINIL [Suspect]
     Active Substance: TREPROSTINIL
     Indication: Pulmonary arterial hypertension
     Dosage: 125 NG/KG/MIN (CONTINUOUS)
     Route: 058
     Dates: start: 20210923
  2. TREPROSTINIL [Suspect]
     Active Substance: TREPROSTINIL
     Dosage: 133 NG/KG/MIN (CONTINUOUS)
     Route: 058
  3. TREPROSTINIL [Suspect]
     Active Substance: TREPROSTINIL
     Dosage: 125 NG/KG/MIN (CONTINUOUS)
     Route: 058
  4. TREPROSTINIL [Suspect]
     Active Substance: TREPROSTINIL
     Dosage: 133 NG/KG/MIN,(CONTINUOUS)
     Route: 058
  5. OPSUMIT [Concomitant]
     Active Substance: MACITENTAN
     Indication: Product used for unknown indication
     Dosage: UNK
     Route: 065

REACTIONS (11)
  - Supraventricular tachycardia [Unknown]
  - Abscess [Unknown]
  - Skin discolouration [Unknown]
  - Chest discomfort [Unknown]
  - Feeling abnormal [Recovering/Resolving]
  - Hypotension [Recovering/Resolving]
  - Dizziness [Recovering/Resolving]
  - Dyspnoea [Recovering/Resolving]
  - Injection site pruritus [Unknown]
  - Device occlusion [Unknown]
  - Device leakage [Unknown]

NARRATIVE: CASE EVENT DATE: 20221025
